FAERS Safety Report 7903648 (Version 3)
Quarter: 2013Q3

REPORT INFORMATION
  Report Type: Spontaneous
  Country: AR (occurrence: AR)
  Receive Date: 20110419
  Receipt Date: 20130703
  Transmission Date: 20140515
  Serious: Yes (Hospitalization, Other)
  Sender: FDA-Public Use
  Company Number: AR-AMGEN-ARGSP2011020009

PATIENT
  Age: 59 Year
  Sex: Male
  Weight: 84 kg

DRUGS (6)
  1. ENBREL [Suspect]
     Indication: RHEUMATOID ARTHRITIS
     Dosage: 50 MG, MONTHLY
     Route: 058
     Dates: start: 2006, end: 20110208
  2. ENBREL [Suspect]
     Dosage: 50 MG, MONTHLY
     Route: 058
     Dates: start: 201104
  3. HYDROCHLOROTHIAZIDE [Concomitant]
     Dosage: UNK
     Route: 048
     Dates: end: 201103
  4. ALISKIREN [Concomitant]
     Dosage: UNK
     Route: 048
     Dates: end: 201103
  5. ROSUVASTATIN [Concomitant]
     Dosage: UNK
     Route: 048
     Dates: end: 201103
  6. CLOPIDOGREL [Concomitant]
     Dosage: UNK

REACTIONS (6)
  - Aortic dilatation [Recovered/Resolved]
  - Hernial eventration [Not Recovered/Not Resolved]
  - Aortic aneurysm [Recovered/Resolved]
  - Depression [Recovered/Resolved]
  - Stress [Recovered/Resolved]
  - Nervousness [Recovered/Resolved]
